FAERS Safety Report 10022024 (Version 1)
Quarter: 2014Q1

REPORT INFORMATION
  Report Type: Spontaneous
  Country: NL (occurrence: NL)
  Receive Date: 20140319
  Receipt Date: 20140319
  Transmission Date: 20141002
  Serious: Yes (Death)
  Sender: FDA-Public Use
  Company Number: NL-TEVA-468989ISR

PATIENT
  Age: 66 Year
  Sex: Female
  Weight: 65 kg

DRUGS (4)
  1. PIROXICAM CAPSULE 20MG [Suspect]
     Dosage: 20 MG
     Route: 048
     Dates: start: 2005
  2. LYRICA CAPSULE 75MG [Suspect]
     Indication: PAIN
     Dosage: 2 KEER PER DAG 2 STUK(S)
     Route: 048
     Dates: start: 20051102
  3. TRYPTIZOL TABLET 75MG - NON-CURRENT DRUG [Interacting]
     Indication: PAIN
     Route: 048
     Dates: start: 2005
  4. DIPIDOLOR INJVLST 10,0MG/ML AMPUL 2ML [Interacting]
     Dosage: 30 MG
     Route: 042
     Dates: start: 2005

REACTIONS (2)
  - Myocardial infarction [Fatal]
  - Drug interaction [Fatal]
